FAERS Safety Report 17762338 (Version 6)
Quarter: 2020Q4

REPORT INFORMATION
  Report Type: Report from Study
  Country: US (occurrence: US)
  Receive Date: 20200508
  Receipt Date: 20201113
  Transmission Date: 20210113
  Serious: Yes (Other)
  Sender: FDA-Public Use
  Company Number: NVSC2020US125473

PATIENT
  Age: 69 Year
  Sex: Male

DRUGS (1)
  1. ENTRESTO [Suspect]
     Active Substance: SACUBITRIL\VALSARTAN
     Indication: PRODUCT USED FOR UNKNOWN INDICATION
     Dosage: 100 MG, BID (49/51 MG)
     Route: 048
     Dates: start: 201912

REACTIONS (12)
  - Heart rate increased [Recovering/Resolving]
  - Blood cholesterol decreased [Unknown]
  - Sputum discoloured [Recovering/Resolving]
  - Cough [Not Recovered/Not Resolved]
  - Bradycardia [Unknown]
  - Myalgia [Recovering/Resolving]
  - Dyspnoea [Not Recovered/Not Resolved]
  - Blood pressure decreased [Recovering/Resolving]
  - Breath sounds abnormal [Recovering/Resolving]
  - Sinus congestion [Recovering/Resolving]
  - Weight increased [Unknown]
  - Gastrooesophageal reflux disease [Recovering/Resolving]

NARRATIVE: CASE EVENT DATE: 202003
